FAERS Safety Report 5574794-6 (Version None)
Quarter: 2007Q4

REPORT INFORMATION
  Report Type: 
  Country: None (occurrence: None)
  Receive Date: 20071226
  Receipt Date: 20071226
  Transmission Date: 20080405
  Serious: Yes (Hospitalization)
  Sender: FDA-Public Use
  Company Number: None

PATIENT
  Sex: Female
  Weight: 96.6 kg

DRUGS (5)
  1. CYTARABINE [Suspect]
     Dosage: 16160 MG
  2. MYLOTARG [Concomitant]
     Dosage: 61.5 MG
  3. NEUPOGEN [Concomitant]
  4. CYTARABINE [Concomitant]
  5. FLUDARABINE PHOSPHATE [Concomitant]

REACTIONS (16)
  - ACUTE MONOCYTIC LEUKAEMIA [None]
  - ACUTE RESPIRATORY DISTRESS SYNDROME [None]
  - BRADYCARDIA [None]
  - COMPLEX PARTIAL SEIZURES [None]
  - COMPUTERISED TOMOGRAM ABNORMAL [None]
  - ENTEROCOCCAL INFECTION [None]
  - FUNGAL INFECTION [None]
  - HYPOTENSION [None]
  - INFECTION [None]
  - LEUKAEMIA [None]
  - LEUKAEMIC INFILTRATION PULMONARY [None]
  - LUNG NEOPLASM [None]
  - MEDIASTINAL DISORDER [None]
  - NO THERAPEUTIC RESPONSE [None]
  - PLEURAL DISORDER [None]
  - SPLENIC LESION [None]
